FAERS Safety Report 5343934-6 (Version None)
Quarter: 2007Q2

REPORT INFORMATION
  Report Type: 
  Country: None (occurrence: None)
  Receive Date: 20070531
  Receipt Date: 20070531
  Transmission Date: 20071010
  Serious: Yes (Life-Threatening, Hospitalization, Disabling)
  Sender: FDA-Public Use
  Company Number: None

PATIENT
  Age: 10 Month
  Sex: Male
  Weight: 9.6 kg

DRUGS (12)
  1. REMICADE [Suspect]
     Indication: GRAFT VERSUS HOST DISEASE
     Dosage: 5MG/KG Q 7D X3 DOSES IV DRIP
     Route: 041
     Dates: start: 20070501, end: 20070514
  2. TACROLIMUS [Concomitant]
  3. MYCOPHENOLATE MOFETIL [Concomitant]
  4. BECLOMETHASONE DIPROPIONATE [Concomitant]
  5. TPN [Concomitant]
  6. ESOMEPRAZOLE MAGNESIUM [Concomitant]
  7. FLUCONAZOLE [Concomitant]
  8. GENCICLOVIR [Concomitant]
  9. KEPPRA [Concomitant]
  10. PREDNISONE TAB [Concomitant]
  11. BACTRIM [Concomitant]
  12. VANCOMYCIN HCL [Concomitant]

REACTIONS (11)
  - BLOOD LACTATE DEHYDROGENASE INCREASED [None]
  - BLOOD PH DECREASED [None]
  - BLOOD UREA DECREASED [None]
  - BLOODY DISCHARGE [None]
  - DIALYSIS [None]
  - HAEMOLYSIS [None]
  - HYPERTENSION [None]
  - OXYGEN SATURATION DECREASED [None]
  - PULMONARY OEDEMA [None]
  - THROMBOTIC MICROANGIOPATHY [None]
  - WEIGHT INCREASED [None]
